FAERS Safety Report 9156893 (Version 1)
Quarter: 2013Q1

REPORT INFORMATION
  Report Type: Spontaneous
  Country: US (occurrence: None)
  Receive Date: 20130308
  Receipt Date: 20130308
  Transmission Date: 20140127
  Serious: Yes (Other)
  Sender: FDA-Public Use
  Company Number: None

PATIENT
  Age: 15 Year
  Sex: Female
  Weight: 49 kg

DRUGS (3)
  1. PAROXETINE [Suspect]
     Indication: SOCIAL PHOBIA
     Dosage: 20 MG ONCE A DAY PO
     Route: 048
     Dates: start: 20120101, end: 20120909
  2. PAROXETINE [Suspect]
     Indication: DEPRESSION
     Dosage: 20 MG ONCE A DAY PO
     Route: 048
     Dates: start: 20120101, end: 20120909
  3. RITALIN [Suspect]
     Indication: FATIGUE
     Dosage: 20MG  ONCE A DAY PO
     Route: 048
     Dates: start: 20120101, end: 20120909

REACTIONS (11)
  - Depression suicidal [None]
  - Suicide attempt [None]
  - Intentional overdose [None]
  - Tremor [None]
  - Fear [None]
  - Overdose [None]
  - Fatigue [None]
  - Hallucination, visual [None]
  - Mood swings [None]
  - Anxiety [None]
  - Feeling abnormal [None]
